FAERS Safety Report 17339527 (Version 1)
Quarter: 2020Q1

REPORT INFORMATION
  Report Type: Spontaneous
  Country: US (occurrence: US)
  Receive Date: 20200129
  Receipt Date: 20200129
  Transmission Date: 20200409
  Serious: Yes (Other)
  Sender: FDA-Public Use
  Company Number: US-GLAXOSMITHKLINE-US2020AMR012677

PATIENT
  Age: 60 Year
  Sex: Female

DRUGS (3)
  1. VALTREX [Suspect]
     Active Substance: VALACYCLOVIR HYDROCHLORIDE
     Dosage: 1000 MG, QD
     Route: 048
  2. VALTREX [Suspect]
     Active Substance: VALACYCLOVIR HYDROCHLORIDE
     Dosage: 1000 MG, BID
     Route: 048
  3. VALTREX [Suspect]
     Active Substance: VALACYCLOVIR HYDROCHLORIDE
     Indication: OPHTHALMIC HERPES ZOSTER
     Dosage: 1000 MG, TID
     Route: 048
     Dates: start: 20160705

REACTIONS (30)
  - Pain [Unknown]
  - Lacrimation increased [Recovered/Resolved]
  - Eye pain [Recovered/Resolved]
  - Eye pruritus [Unknown]
  - Visual impairment [Unknown]
  - Glare [Unknown]
  - Lens extraction [Unknown]
  - Intraocular lens implant [Unknown]
  - Photophobia [Recovered/Resolved]
  - Trigeminal neuralgia [Unknown]
  - Anxiety [Unknown]
  - Corneal dystrophy [Unknown]
  - Facial pain [Unknown]
  - Rash [Unknown]
  - Vitreous floaters [Unknown]
  - Hyponatraemia [Unknown]
  - Cataract nuclear [Unknown]
  - Vision blurred [Unknown]
  - Peripheral nerve decompression [Unknown]
  - Vitreous detachment [Unknown]
  - Dry eye [Unknown]
  - Blood glucose increased [Unknown]
  - Asthenopia [Unknown]
  - Hypoaesthesia [Unknown]
  - Polydipsia [Unknown]
  - Eye irritation [Unknown]
  - Erythema of eyelid [Unknown]
  - Ocular discomfort [Recovered/Resolved]
  - Diplopia [Unknown]
  - Cataract operation [Unknown]

NARRATIVE: CASE EVENT DATE: 2016
